FAERS Safety Report 19855537 (Version 1)
Quarter: 2021Q3

REPORT INFORMATION
  Report Type: Spontaneous
  Country: US (occurrence: US)
  Receive Date: 20210920
  Receipt Date: 20210920
  Transmission Date: 20211014
  Serious: No
  Sender: FDA-Public Use
  Company Number: None

PATIENT
  Sex: Female

DRUGS (14)
  1. VITAMIN B12 [Concomitant]
     Active Substance: CYANOCOBALAMIN
  2. ALYQ [Concomitant]
     Active Substance: TADALAFIL
  3. VITAMIN D [Concomitant]
     Active Substance: VITAMIN D NOS
  4. FOLIC ACID. [Concomitant]
     Active Substance: FOLIC ACID
  5. ELIQUIS [Concomitant]
     Active Substance: APIXABAN
  6. FLUTICASONE PROPIONATE. [Concomitant]
     Active Substance: FLUTICASONE PROPIONATE
  7. FEXOFENADINE HYDROCHLORID [Concomitant]
  8. TADALAFIL. [Concomitant]
     Active Substance: TADALAFIL
  9. TYLENOL 8 HR ARTHRITIS PAIN [Concomitant]
     Active Substance: ACETAMINOPHEN
  10. ORENITRAM [Concomitant]
     Active Substance: TREPROSTINIL
  11. AMBRISENTAN [Suspect]
     Active Substance: AMBRISENTAN
     Route: 048
  12. MAGNESIUM ASPARTATE [Concomitant]
     Active Substance: MAGNESIUM ASPARTATE
  13. ALLEGRA ALLERGY [Concomitant]
     Active Substance: FEXOFENADINE HYDROCHLORIDE
  14. CREON [Concomitant]
     Active Substance: PANCRELIPASE AMYLASE\PANCRELIPASE LIPASE\PANCRELIPASE PROTEASE

REACTIONS (3)
  - Malaise [None]
  - Therapy interrupted [None]
  - Dyspnoea [None]
